FAERS Safety Report 4499512-4 (Version None)
Quarter: 2004Q4

REPORT INFORMATION
  Report Type: 
  Country: None (occurrence: None)
  Receive Date: 20040928
  Receipt Date: 20040617
  Transmission Date: 20050328
  Serious: No
  Sender: FDA-Public Use
  Company Number: 03P-163-0245640-00

PATIENT
  Age: 68 Year
  Sex: Female

DRUGS (14)
  1. HUMIRA [Suspect]
     Indication: RHEUMATOID ARTHRITIS
     Dosage: 40 MG, 1 IN 2 WK, SUBCUTANEOUS
     Route: 058
     Dates: start: 20030901
  2. PREDNISONE [Concomitant]
  3. METHOTREXATE [Concomitant]
  4. ESOMEPRAZOLE [Concomitant]
  5. LEVOTHYROXINE SODIUM [Concomitant]
  6. CALCIUM [Concomitant]
  7. FOLIC ACID [Concomitant]
  8. VITAMIN D WITH C COMPLEX [Concomitant]
  9. ASCORBIC ACID [Concomitant]
  10. ^E200IU^ [Concomitant]
  11. CALCIUM ASCORBATE [Concomitant]
  12. LEKOVIT CA [Concomitant]
  13. CALICITONIN, SALMON [Concomitant]
  14. COMBIVENT [Concomitant]

REACTIONS (6)
  - DYSGEUSIA [None]
  - INJECTION SITE ERYTHEMA [None]
  - INJECTION SITE STINGING [None]
  - PARAESTHESIA [None]
  - PRURITUS [None]
  - URINARY TRACT INFECTION [None]
